FAERS Safety Report 5724829-2 (Version None)
Quarter: 2008Q2

REPORT INFORMATION
  Report Type: 
  Country: None (occurrence: None)
  Receive Date: 20080501
  Receipt Date: 20080426
  Transmission Date: 20081010
  Serious: Yes (Other)
  Sender: FDA-Public Use
  Company Number: GB-ROCHE-561171

PATIENT
  Sex: Male
  Weight: 99.6 kg

DRUGS (2)
  1. ORLISTAT [Suspect]
     Indication: OBESITY
     Route: 048
     Dates: start: 20071109, end: 20080326
  2. LANSOPRAZOLE [Concomitant]
     Route: 048

REACTIONS (2)
  - METASTASES TO BONE [None]
  - METASTASES TO LUNG [None]
